FAERS Safety Report 7305788-8 (Version None)
Quarter: 2011Q1

REPORT INFORMATION
  Report Type: 
  Country: None (occurrence: None)
  Receive Date: 20110222
  Receipt Date: 20110215
  Transmission Date: 20110831
  Serious: Yes (Other)
  Sender: FDA-Public Use
  Company Number: B0701066A

PATIENT
  Age: 72 Year
  Sex: Male

DRUGS (1)
  1. SERETIDE [Suspect]
     Indication: ASTHMA
     Route: 065
     Dates: start: 20100101

REACTIONS (5)
  - DEPRESSION [None]
  - ORAL FUNGAL INFECTION [None]
  - HYPOXIA [None]
  - SLEEP DISORDER [None]
  - DYSPHONIA [None]
